FAERS Safety Report 7097800-9 (Version None)
Quarter: 2010Q4

REPORT INFORMATION
  Report Type: 
  Country: None (occurrence: None)
  Receive Date: 20101103
  Receipt Date: 20100924
  Transmission Date: 20110411
  Serious: Yes (Other)
  Sender: FDA-Public Use
  Company Number: ACO_02392_2010

PATIENT
  Sex: Male
  Weight: 67.1324 kg

DRUGS (17)
  1. AMPYRA [Suspect]
     Indication: BALANCE DISORDER
     Dosage: 10 MG BID, EVERY 12 HOURS ORAL
     Route: 048
     Dates: start: 20100901, end: 20100923
  2. AMPYRA [Suspect]
     Indication: GAIT DISTURBANCE
     Dosage: 10 MG BID, EVERY 12 HOURS ORAL
     Route: 048
     Dates: start: 20100901, end: 20100923
  3. CELEBREX [Concomitant]
  4. SYNTHROID [Concomitant]
  5. MACROBID [Concomitant]
  6. THIAMINE HCL [Concomitant]
  7. TOPROL-XL [Concomitant]
  8. AMANTADINE [Concomitant]
  9. FISH OIL [Concomitant]
  10. CRESTOR [Concomitant]
  11. PLAVIX [Concomitant]
  12. VITAMINS WITH MINERALS [Concomitant]
  13. NIACIN [Concomitant]
  14. FOLIC ACID [Concomitant]
  15. AVONEX [Concomitant]
  16. VITAMIN B COMPLEX [Concomitant]
  17. ASPIRIN [Concomitant]

REACTIONS (2)
  - EATING DISORDER [None]
  - HALLUCINATION, VISUAL [None]
